FAERS Safety Report 5453260-2 (Version None)
Quarter: 2007Q3

REPORT INFORMATION
  Report Type: 
  Country: None (occurrence: None)
  Receive Date: 20070813
  Receipt Date: 20070312
  Transmission Date: 20080115
  Serious: Yes (Hospitalization)
  Sender: FDA-Public Use
  Company Number: 20073595

PATIENT
  Age: 29 Year
  Sex: Female

DRUGS (8)
  1. LIORESAL [Suspect]
     Indication: MUSCLE SPASTICITY
     Dosage: 1000 MCG, DAILY, INTRATHECAL
     Route: 037
  2. ATRACURIUM BESYLATE [Concomitant]
  3. PANCURONIUM [Concomitant]
  4. DANTROLENE SODIUM [Concomitant]
  5. MAGNESIUM SULFATE [Concomitant]
  6. PROPOFOL [Concomitant]
  7. MIDAZOLAM HCL [Concomitant]
  8. METRONIDAZOLE [Concomitant]

REACTIONS (2)
  - DRUG INEFFECTIVE [None]
  - HYPOTENSION [None]
